FAERS Safety Report 7961542-5 (Version None)
Quarter: 2011Q4

REPORT INFORMATION
  Report Type: 
  Country: None (occurrence: None)
  Receive Date: 20111207
  Receipt Date: 20111129
  Transmission Date: 20120403
  Serious: Yes (Hospitalization, Other)
  Sender: FDA-Public Use
  Company Number: US-ASTELLAS-2011US008003

PATIENT
  Sex: Male
  Weight: 87 kg

DRUGS (11)
  1. PROGRAF [Suspect]
     Indication: LIVER TRANSPLANT
     Dosage: 0.5 MG, UID/QD
     Route: 048
     Dates: start: 19941210
  2. ATENOLOL [Concomitant]
     Indication: BLOOD PRESSURE
     Dosage: 25 MG, UID/QD
     Route: 048
  3. LANTUS [Concomitant]
     Indication: DIABETES MELLITUS
     Dosage: 35 U, UID/QD
     Route: 065
  4. PREDNISONE TAB [Concomitant]
     Indication: LIVER TRANSPLANT
     Dosage: 5 MG, UID/QD
     Route: 048
     Dates: start: 19941210
  5. MOMETASONE FUROATE [Concomitant]
     Indication: DRY SKIN
     Dosage: UNK
     Route: 061
  6. AMLODIPINE [Concomitant]
     Indication: HYPERTENSION
     Dosage: 5 MG, UID/QD
     Route: 048
  7. OMEPRAZOLE [Concomitant]
     Indication: GASTROOESOPHAGEAL REFLUX PROPHYLAXIS
     Dosage: 20 MG, QHS AS NEEDED
     Route: 048
     Dates: start: 19941210
  8. PLAVIX [Concomitant]
     Indication: THROMBOSIS
     Dosage: 75 MG, UID/QD
     Route: 048
     Dates: start: 20100301
  9. LISINOPRIL [Concomitant]
     Indication: HYPERTENSION
     Dosage: 10 MG, UID/QD
     Route: 048
  10. NOVOLOG [Concomitant]
     Indication: DIABETES MELLITUS
     Dosage: 5 U, TID
     Route: 065
     Dates: start: 19960101
  11. BYETTA [Concomitant]
     Indication: DIABETES MELLITUS
     Dosage: 5 UG, BID
     Route: 048

REACTIONS (6)
  - CONGENITAL CYSTIC KIDNEY DISEASE [None]
  - AMMONIA INCREASED [None]
  - LIVER DISORDER [None]
  - INTERVERTEBRAL DISC INJURY [None]
  - CORONARY ARTERIAL STENT INSERTION [None]
  - GOUT [None]
